FAERS Safety Report 25798017 (Version 2)
Quarter: 2025Q4

REPORT INFORMATION
  Report Type: Spontaneous
  Country: US (occurrence: None)
  Receive Date: 20250912
  Receipt Date: 20251113
  Transmission Date: 20260117
  Serious: Yes (Hospitalization)
  Sender: UCB
  Company Number: US-UCBSA-2025055450

PATIENT
  Age: 45 Year

DRUGS (1)
  1. BIMZELX [Suspect]
     Active Substance: BIMEKIZUMAB-BKZX
     Indication: Axial spondyloarthritis
     Dosage: 160 MILLIGRAM, EV 4 WEEKS

REACTIONS (3)
  - Gastric ulcer [Unknown]
  - COVID-19 [Unknown]
  - Oral candidiasis [Unknown]
